FAERS Safety Report 6746378-5 (Version None)
Quarter: 2010Q2

REPORT INFORMATION
  Report Type: 
  Country: None (occurrence: None)
  Receive Date: 20100528
  Receipt Date: 20100519
  Transmission Date: 20101027
  Serious: Yes (Life-Threatening, Hospitalization)
  Sender: FDA-Public Use
  Company Number: JP-ROCHE-690708

PATIENT
  Age: 57 Year
  Sex: Male
  Weight: 54 kg

DRUGS (3)
  1. TAMIFLU [Suspect]
     Route: 048
     Dates: start: 20100107, end: 20100107
  2. TAMIFLU [Suspect]
     Route: 048
     Dates: start: 20100108, end: 20100111
  3. TAMIFLU [Suspect]
     Route: 048
     Dates: start: 20100112, end: 20100112

REACTIONS (8)
  - ALTERED STATE OF CONSCIOUSNESS [None]
  - HAEMODIALYSIS [None]
  - OVERDOSE [None]
  - PNEUMOCOCCAL SEPSIS [None]
  - PNEUMONIA PNEUMOCOCCAL [None]
  - RENAL FAILURE ACUTE [None]
  - RESPIRATORY FAILURE [None]
  - RHABDOMYOLYSIS [None]
